FAERS Safety Report 9465905 (Version 2)
Quarter: 2013Q3

REPORT INFORMATION
  Report Type: Not Available
  Country: FR (occurrence: FR)
  Receive Date: 20130820
  Receipt Date: 20130820
  Transmission Date: 20140515
  Serious: Yes (Other)
  Sender: FDA-Public Use
  Company Number: FR-ASTELLAS-2013EU000109

PATIENT
  Age: 51 Year
  Sex: Female

DRUGS (5)
  1. PROGRAF [Suspect]
     Dosage: UNK
     Route: 065
  2. VFEND [Suspect]
     Indication: ASPERGILLUS TEST POSITIVE
     Dosage: UNK
     Route: 065
  3. GLIVEC [Concomitant]
     Dosage: UNK
     Route: 065
  4. ARIMIDEX [Concomitant]
     Dosage: UNK
     Route: 065
  5. KARDEGIC [Concomitant]
     Dosage: UNK
     Route: 065

REACTIONS (2)
  - Squamous cell carcinoma of head and neck [Recovered/Resolved with Sequelae]
  - Actinic keratosis [Recovered/Resolved with Sequelae]
